FAERS Safety Report 6837177-4 (Version None)
Quarter: 2010Q3

REPORT INFORMATION
  Report Type: 
  Country: None (occurrence: None)
  Receive Date: 20100713
  Receipt Date: 20070507
  Transmission Date: 20110219
  Serious: No
  Sender: FDA-Public Use
  Company Number: US-PFIZER INC-2007037938

PATIENT
  Sex: Male
  Weight: 86.18 kg

DRUGS (4)
  1. CHANTIX [Suspect]
     Indication: SMOKING CESSATION THERAPY
     Dates: start: 20070412
  2. BUSPAR [Concomitant]
     Dates: start: 20070412
  3. XANAX [Concomitant]
     Dates: start: 20070412
  4. MARIJUANA [Concomitant]

REACTIONS (1)
  - DRUG SCREEN POSITIVE [None]
